FAERS Safety Report 6457709-8 (Version None)
Quarter: 2009Q4

REPORT INFORMATION
  Report Type: 
  Country: None (occurrence: None)
  Receive Date: 20091125
  Receipt Date: 20091123
  Transmission Date: 20100525
  Serious: Yes (Death, Other)
  Sender: FDA-Public Use
  Company Number: FR-BRISTOL-MYERS SQUIBB COMPANY-14845408

PATIENT
  Age: 44 Year
  Sex: Male

DRUGS (6)
  1. ABILIFY [Suspect]
  2. TEGRETOL [Suspect]
     Dosage: TAKING SINCE 10YEARS
  3. TERALITHE [Suspect]
     Dosage: 3 TABS IN THE EVENING
  4. LOXAPAC [Suspect]
  5. SOLIAN [Concomitant]
     Dosage: 1/2 TABS SINCE 36MONTHS
  6. IMOVANE [Concomitant]
     Dosage: 1 DF - 1/2 TO 1 TABS BEFORE SLEEPING

REACTIONS (2)
  - CARDIAC ARREST [None]
  - ELECTROLYTE IMBALANCE [None]
